FAERS Safety Report 19891699 (Version 2)
Quarter: 2022Q3

REPORT INFORMATION
  Report Type: Spontaneous
  Country: DE (occurrence: DE)
  Receive Date: 20210928
  Receipt Date: 20220914
  Transmission Date: 20221027
  Serious: Yes (Hospitalization, Disabling)
  Sender: FDA-Public Use
  Company Number: DE-JNJFOC-20200524780

PATIENT
  Age: 22 Year
  Sex: Male

DRUGS (17)
  1. RISPERIDONE [Interacting]
     Active Substance: RISPERIDONE
     Indication: Schizophrenia
     Dosage: 0.5 MILLIGRAM, QD
     Route: 065
     Dates: start: 20200306, end: 20200310
  2. RISPERIDONE [Interacting]
     Active Substance: RISPERIDONE
     Dosage: 1 MILLIGRAM, QD
     Route: 065
     Dates: start: 20200311, end: 20200316
  3. RISPERIDONE [Interacting]
     Active Substance: RISPERIDONE
     Dosage: 1.5 MILLIGRAM, QD
     Route: 065
     Dates: start: 20200317, end: 20200318
  4. RISPERIDONE [Interacting]
     Active Substance: RISPERIDONE
     Dosage: 2 MILLIGRAM, QD
     Route: 065
     Dates: start: 20200319, end: 20200323
  5. RISPERIDONE [Interacting]
     Active Substance: RISPERIDONE
     Dosage: 3 MILLIGRAM, QD
     Route: 065
     Dates: start: 20200324, end: 20200405
  6. RISPERIDONE [Interacting]
     Active Substance: RISPERIDONE
     Dosage: 1 MILLIGRAM, QD
     Route: 065
     Dates: start: 20200406, end: 20200414
  7. RISPERIDONE [Interacting]
     Active Substance: RISPERIDONE
     Dosage: 2 MILLIGRAM, QD
     Route: 065
     Dates: start: 20200415, end: 20200419
  8. RISPERIDONE [Interacting]
     Active Substance: RISPERIDONE
     Dosage: 1 MILLIGRAM, QD
     Route: 065
     Dates: start: 20200420, end: 20200421
  9. RISPERIDONE [Interacting]
     Active Substance: RISPERIDONE
     Dosage: 5 MILLIGRAM, QD
     Route: 065
  10. RISPERIDONE [Interacting]
     Active Substance: RISPERIDONE
     Dosage: 3 MILLIGRAM, QD
     Route: 065
  11. RISPERIDONE [Interacting]
     Active Substance: RISPERIDONE
     Dosage: 1 MILLIGRAM, QD
     Route: 065
  12. CARIPRAZINE [Interacting]
     Active Substance: CARIPRAZINE
     Indication: Schizophrenia
     Dosage: 1.5 MILLIGRAM, QD
     Route: 065
     Dates: start: 20200313, end: 20200326
  13. CARIPRAZINE [Interacting]
     Active Substance: CARIPRAZINE
     Dosage: 3 MILLIGRAM, QD
     Route: 065
     Dates: start: 20200327, end: 20200407
  14. CARIPRAZINE [Interacting]
     Active Substance: CARIPRAZINE
     Dosage: 1.5 MILLIGRAM, QD
     Route: 065
     Dates: start: 20200408
  15. CARIPRAZINE [Interacting]
     Active Substance: CARIPRAZINE
     Dosage: 1.5 MILLIGRAM, QD
     Route: 065
  16. CARIPRAZINE [Interacting]
     Active Substance: CARIPRAZINE
     Dosage: 3 MILLIGRAM, QD
     Route: 065
  17. BIPERIDEN [Suspect]
     Active Substance: BIPERIDEN
     Indication: Hypokinesia
     Dosage: UNK
     Route: 065

REACTIONS (5)
  - Parkinsonism [Unknown]
  - Extrapyramidal disorder [Unknown]
  - Immobile [Unknown]
  - Drug ineffective [Unknown]
  - Drug interaction [Unknown]

NARRATIVE: CASE EVENT DATE: 20200323
